FAERS Safety Report 7905278-5 (Version None)
Quarter: 2011Q4

REPORT INFORMATION
  Report Type: 
  Country: None (occurrence: None)
  Receive Date: 20111109
  Receipt Date: 20110726
  Transmission Date: 20120403
  Serious: No
  Sender: FDA-Public Use
  Company Number: US-BAYER-2011-067013

PATIENT
  Age: 73 Year
  Sex: Male
  Weight: 127 kg

DRUGS (3)
  1. NAPROXEN (ALEVE) [Suspect]
     Indication: ARTHRITIS
     Dosage: 1 U, PRN
  2. ATENOLOL [Concomitant]
  3. DIOVAN [Concomitant]

REACTIONS (2)
  - RESTLESSNESS [None]
  - DRUG INEFFECTIVE [None]
